FAERS Safety Report 5714079-8 (Version None)
Quarter: 2008Q2

REPORT INFORMATION
  Report Type: 
  Country: None (occurrence: None)
  Receive Date: 20080423
  Receipt Date: 20080421
  Transmission Date: 20081010
  Serious: Yes (Other)
  Sender: FDA-Public Use
  Company Number: US-BAYER-200714960NA

PATIENT
  Age: 27 Year
  Sex: Female
  Weight: 91 kg

DRUGS (1)
  1. MIRENA [Suspect]
     Indication: CONTRACEPTION
     Route: 015
     Dates: start: 20010101, end: 20060619

REACTIONS (3)
  - DEVICE BREAKAGE [None]
  - INFERTILITY FEMALE [None]
  - IUD MIGRATION [None]
